FAERS Safety Report 5361304-1 (Version None)
Quarter: 2007Q2

REPORT INFORMATION
  Report Type: 
  Country: None (occurrence: None)
  Receive Date: 20070612
  Receipt Date: 20070601
  Transmission Date: 20071010
  Serious: Yes (Death)
  Sender: FDA-Public Use
  Company Number: E3810-00967-SPO-JP

PATIENT
  Age: 75 Year
  Sex: Female

DRUGS (7)
  1. PARIET (RABEPRAZOLE) (RABEPRAZOLE SODIUM) [Suspect]
     Indication: GASTRIC ULCER
     Dosage: 10 MG, 1 IN 1 D, ORAL
     Route: 048
     Dates: start: 20070402
  2. AMOBAN (ZOPICLONE) [Concomitant]
  3. LIPITOR [Concomitant]
  4. MAGMITT (MAGNESIUM OXIDE) [Concomitant]
  5. FERROMIA (FERROUS CITRATE) [Concomitant]
  6. EPADEL S (ETHYL ICOSAPENTATE) [Concomitant]
  7. TICLOPIDINE HCL [Concomitant]

REACTIONS (4)
  - ALANINE AMINOTRANSFERASE INCREASED [None]
  - ASPARTATE AMINOTRANSFERASE INCREASED [None]
  - JAUNDICE [None]
  - NAUSEA [None]
